FAERS Safety Report 17308120 (Version 3)
Quarter: 2020Q1

REPORT INFORMATION
  Report Type: Spontaneous
  Country: US (occurrence: US)
  Receive Date: 20200123
  Receipt Date: 20200204
  Transmission Date: 20200409
  Serious: Yes (Death, Hospitalization)
  Sender: FDA-Public Use
  Company Number: US-ABBVIE-20K-163-3246437-00

PATIENT
  Age: 85 Year
  Sex: Male

DRUGS (2)
  1. IMBRUVICA [Suspect]
     Active Substance: IBRUTINIB
     Route: 048
     Dates: start: 20200107, end: 202001
  2. IMBRUVICA [Suspect]
     Active Substance: IBRUTINIB
     Indication: DIFFUSE LARGE B-CELL LYMPHOMA
     Route: 048
     Dates: end: 20200107

REACTIONS (8)
  - Lung neoplasm [Unknown]
  - Urinary retention [Unknown]
  - Respiratory failure [Fatal]
  - Thrombocytopenia [Unknown]
  - Toxicity to various agents [Unknown]
  - Pulmonary embolism [Unknown]
  - General physical health deterioration [Unknown]
  - Metastasis [Unknown]

NARRATIVE: CASE EVENT DATE: 202001
